FAERS Safety Report 24266900 (Version 1)
Quarter: 2024Q3

REPORT INFORMATION
  Report Type: Report from Study
  Country: US (occurrence: None)
  Receive Date: 20240830
  Receipt Date: 20240830
  Transmission Date: 20241017
  Serious: Yes (Other)
  Sender: ASTRAZENECA
  Company Number: 2024A193560

PATIENT
  Sex: Female

DRUGS (1)
  1. LYNPARZA [Suspect]
     Active Substance: OLAPARIB
     Indication: Fallopian tube cancer
     Route: 048
     Dates: start: 20231114

REACTIONS (5)
  - Bacterial vaginosis [Unknown]
  - Illness [Unknown]
  - Paranasal sinus discomfort [Unknown]
  - Red blood cell nucleated morphology present [Unknown]
  - Intentional dose omission [Unknown]
